FAERS Safety Report 7548148-7 (Version None)
Quarter: 2011Q2

REPORT INFORMATION
  Report Type: 
  Country: None (occurrence: None)
  Receive Date: 20110608
  Receipt Date: 20110523
  Transmission Date: 20111010
  Serious: Yes (Death, Other)
  Sender: FDA-Public Use
  Company Number: 2011MA006289

PATIENT
  Age: 32 Year
  Sex: Female

DRUGS (2)
  1. TRAMADOL HYDROCHLORIDE [Suspect]
     Dosage: 2.6 MG/L
  2. VENLAFAXINE [Concomitant]

REACTIONS (4)
  - OBSTRUCTIVE AIRWAYS DISORDER [None]
  - TOXICITY TO VARIOUS AGENTS [None]
  - OBESITY [None]
  - ASPIRATION [None]
